FAERS Safety Report 25918140 (Version 1)
Quarter: 2025Q4

REPORT INFORMATION
  Report Type: Spontaneous
  Country: EU (occurrence: EU)
  Receive Date: 20251014
  Receipt Date: 20251014
  Transmission Date: 20260117
  Serious: Yes (Other)
  Sender: AMGEN
  Company Number: None

PATIENT
  Age: 2 Year
  Sex: Female

DRUGS (7)
  1. NPLATE [Suspect]
     Active Substance: ROMIPLOSTIM
     Indication: Immune thrombocytopenia
     Dosage: 1 DOSAGE FORM, QD
     Route: 040
     Dates: start: 20250905, end: 20250905
  2. NPLATE [Suspect]
     Active Substance: ROMIPLOSTIM
     Dosage: 1 DOSAGE FORM, QD
     Route: 040
     Dates: start: 20250911, end: 20250911
  3. NPLATE [Suspect]
     Active Substance: ROMIPLOSTIM
     Dosage: 1 DOSAGE FORM, QD
     Route: 040
     Dates: start: 20250918, end: 20250918
  4. PRIVIGEN [Concomitant]
     Active Substance: HUMAN IMMUNOGLOBULIN G
     Indication: Immune thrombocytopenia
     Dosage: 1 DOSAGE FORM
     Route: 040
     Dates: start: 20250724, end: 20250724
  5. PRIVIGEN [Concomitant]
     Active Substance: HUMAN IMMUNOGLOBULIN G
     Dosage: 1 DOSAGE FORM
     Route: 040
     Dates: start: 20250813, end: 20250813
  6. PRIVIGEN [Concomitant]
     Active Substance: HUMAN IMMUNOGLOBULIN G
     Dosage: 1 DOSAGE FORM
     Route: 040
     Dates: start: 20250821, end: 20250821
  7. PRIVIGEN [Concomitant]
     Active Substance: HUMAN IMMUNOGLOBULIN G
     Dosage: 1 DOSAGE FORM
     Route: 040
     Dates: start: 20250905, end: 20250905

REACTIONS (2)
  - Product administration error [Not Recovered/Not Resolved]
  - Thrombocytosis [Recovering/Resolving]

NARRATIVE: CASE EVENT DATE: 20250918
